FAERS Safety Report 6891008-5 (Version None)
Quarter: 2010Q3

REPORT INFORMATION
  Report Type: 
  Country: None (occurrence: None)
  Receive Date: 20100731
  Receipt Date: 20090501
  Transmission Date: 20110219
  Serious: Yes (Hospitalization, Other)
  Sender: FDA-Public Use
  Company Number: US-PFIZER INC-2009201614

PATIENT
  Sex: Male
  Weight: 92.971 kg

DRUGS (2)
  1. LIPITOR [Suspect]
     Indication: BLOOD CHOLESTEROL INCREASED
     Dosage: UNK
     Dates: start: 20090413, end: 20090417
  2. METOPROLOL TARTRATE [Concomitant]

REACTIONS (2)
  - DERMATITIS ALLERGIC [None]
  - HYPERSENSITIVITY [None]
